FAERS Safety Report 7450151-2 (Version None)
Quarter: 2011Q2

REPORT INFORMATION
  Report Type: 
  Country: None (occurrence: None)
  Receive Date: 20110428
  Receipt Date: 20110428
  Transmission Date: 20111010
  Serious: Yes (Other)
  Sender: FDA-Public Use
  Company Number: None

PATIENT
  Sex: Female

DRUGS (2)
  1. MARCAINE [Suspect]
     Indication: SPINAL ANAESTHESIA
     Dosage: ONCE INTRADISCAL (INTRASPINAL)  1 DOSE PER PATIENT
     Route: 024
  2. MARCAINE [Suspect]
     Indication: CAESAREAN SECTION
     Dosage: ONCE INTRADISCAL (INTRASPINAL)  1 DOSE PER PATIENT
     Route: 024

REACTIONS (3)
  - THERAPEUTIC RESPONSE DECREASED [None]
  - PRODUCT MEASURED POTENCY ISSUE [None]
  - PRODUCT QUALITY ISSUE [None]
